FAERS Safety Report 5661271-7 (Version None)
Quarter: 2008Q1

REPORT INFORMATION
  Report Type: 
  Country: None (occurrence: None)
  Receive Date: 20080312
  Receipt Date: 20080307
  Transmission Date: 20080703
  Serious: Yes (Life-Threatening, Hospitalization, Disabling)
  Sender: FDA-Public Use
  Company Number: B0511427A

PATIENT
  Age: 32 Year
  Sex: Female
  Weight: 75 kg

DRUGS (3)
  1. ARIXTRA [Suspect]
     Indication: THROMBOSIS PROPHYLAXIS
     Dosage: 2.5MG PER DAY
     Route: 058
     Dates: start: 20071019, end: 20071102
  2. UNASYN [Concomitant]
     Indication: HIP DYSPLASIA
  3. SULPERAZON [Concomitant]
     Indication: HIP DYSPLASIA

REACTIONS (2)
  - DEEP VEIN THROMBOSIS [None]
  - OEDEMA PERIPHERAL [None]
